FAERS Safety Report 9003716 (Version 1)
Quarter: 2013Q1

REPORT INFORMATION
  Report Type: Spontaneous
  Country: US (occurrence: US)
  Receive Date: 20130108
  Receipt Date: 20130108
  Transmission Date: 20140127
  Serious: No
  Sender: FDA-Public Use
  Company Number: US-GLAXOSMITHKLINE-A0965711A

PATIENT
  Age: 44 Year
  Sex: Female

DRUGS (15)
  1. LOVAZA [Suspect]
     Indication: BLOOD TRIGLYCERIDES INCREASED
     Dosage: 4CAP PER DAY
     Route: 048
     Dates: start: 201201
  2. ZYRTEC [Concomitant]
  3. MULTIVITAMIN [Concomitant]
  4. SENNA [Concomitant]
  5. VITAMIN D [Concomitant]
  6. B COMPLEX [Concomitant]
  7. PERCOCET [Concomitant]
  8. OXYCONTIN [Concomitant]
  9. LUNESTA [Concomitant]
  10. OMEPRAZOLE [Concomitant]
  11. COMPAZINE [Concomitant]
  12. TRIAMTERENE [Concomitant]
  13. CALCIUM [Concomitant]
  14. DIAZEPAM [Concomitant]
  15. PRO-AIR [Concomitant]

REACTIONS (1)
  - Constipation [Not Recovered/Not Resolved]
